FAERS Safety Report 10491826 (Version 1)
Quarter: 2014Q4

REPORT INFORMATION
  Report Type: Spontaneous
  Country: US (occurrence: US)
  Receive Date: 20141002
  Receipt Date: 20141002
  Transmission Date: 20150528
  Serious: No
  Sender: FDA-Public Use
  Company Number: US-GLAXOSMITHKLINE-A1060474A

PATIENT
  Age: 82 Year
  Sex: Female

DRUGS (4)
  1. ALBUTEROL. [Concomitant]
     Active Substance: ALBUTEROL
  2. EYE DROPS [Concomitant]
     Active Substance: TETRAHYDROZOLINE HYDROCHLORIDE
  3. ADVAIR HFA [Suspect]
     Active Substance: FLUTICASONE PROPIONATE\SALMETEROL XINAFOATE
     Indication: ASTHMA
     Dosage: 1PUFF TWICE PER DAY
     Route: 055
     Dates: start: 2004
  4. LISINOPRIL. [Concomitant]
     Active Substance: LISINOPRIL

REACTIONS (2)
  - Dysphonia [Unknown]
  - Lung disorder [Recovered/Resolved]

NARRATIVE: CASE EVENT DATE: 20140209
